FAERS Safety Report 13618492 (Version 3)
Quarter: 2017Q3

REPORT INFORMATION
  Report Type: Spontaneous
  Country: KR (occurrence: KR)
  Receive Date: 20170606
  Receipt Date: 20170721
  Transmission Date: 20171127
  Serious: Yes (Hospitalization)
  Sender: FDA-Public Use
  Company Number: KR-009507513-1703KOR008782

PATIENT
  Age: 48 Year
  Sex: Male
  Weight: 70 kg

DRUGS (13)
  1. MOBIC [Concomitant]
     Active Substance: MELOXICAM
     Indication: EPICONDYLITIS
     Dosage: 1 CAPSULE, BID
     Route: 048
     Dates: start: 20161219
  2. ESOMEZOL (ESOMEPRAZOLE STRONTIUM) [Concomitant]
     Active Substance: ESOMEPRAZOLE STRONTIUM
     Indication: PROPHYLAXIS
     Dosage: 1 CAPSULE, BID
     Route: 048
     Dates: start: 20161219, end: 20170102
  3. ALOXI [Concomitant]
     Active Substance: PALONOSETRON HYDROCHLORIDE
     Indication: PREMEDICATION
     Dosage: 5 ML, ONCE
     Route: 042
     Dates: start: 20161219, end: 20161219
  4. ALBIS [Concomitant]
     Active Substance: BISMUTH SUBCITRATE\RANITIDINE HYDROCHLORIDE\SUCRALFATE
     Indication: PROPHYLAXIS OF NAUSEA AND VOMITING
     Dosage: 1 TABLET, BID
     Route: 048
     Dates: start: 20161219, end: 20170103
  5. ALMAGATE [Concomitant]
     Active Substance: ALMAGATE
     Indication: EPICONDYLITIS
     Dosage: 1 PK, QD
     Route: 048
     Dates: start: 20150107, end: 20170104
  6. CALMTOP [Concomitant]
     Indication: COLON CANCER
     Dosage: 270 MG, ONCE (CYCLE 1); STRENGTH: 100 MG/5 ML
     Route: 042
     Dates: start: 20161219, end: 20161219
  7. FLUOROURACIL. [Concomitant]
     Active Substance: FLUOROURACIL
     Indication: COLON CANCER
     Dosage: 2930 MG, ONCE (CYCLE 1); STRENGTH: 500 MG/10 ML
     Route: 042
     Dates: start: 20161219, end: 20161219
  8. DEXAMETHASONE SODIUM PHOSPHATE. [Concomitant]
     Active Substance: DEXAMETHASONE SODIUM PHOSPHATE
     Indication: PREMEDICATION
     Dosage: 5 MG, BID; STRENGTH: 5 MG/ML
     Route: 042
     Dates: start: 20161219, end: 20161219
  9. TALION (BEPOTASTINE BESYLATE) [Concomitant]
     Active Substance: BEPOTASTINE
     Indication: PRURITUS
     Dosage: 1 TABLET, BID
     Route: 048
     Dates: start: 20161219, end: 20170102
  10. ERBITUX [Concomitant]
     Active Substance: CETUXIMAB
     Dosage: 700 MG, ONCE (CYCLE 1); STRENGTH: 5MG/20ML
     Route: 042
     Dates: start: 20161226, end: 20161226
  11. EMEND (FOSAPREPITANT DIMEGLUMINE) [Suspect]
     Active Substance: FOSAPREPITANT DIMEGLUMINE
     Indication: PROPHYLAXIS OF NAUSEA AND VOMITING
     Dosage: 150 MG, ONCE
     Route: 042
     Dates: start: 20161219, end: 20161219
  12. ERBITUX [Concomitant]
     Active Substance: CETUXIMAB
     Indication: COLON CANCER
     Dosage: 700 MG, ONCE (CYCLE 1); STRENGTH: 5MG/20ML
     Route: 042
     Dates: start: 20161219, end: 20161219
  13. FLUOROURACIL. [Concomitant]
     Active Substance: FLUOROURACIL
     Dosage: 1760 MG, ONCE (CYCLE 1); STRENGTH: 500 MG/10 ML
     Route: 042
     Dates: start: 20161220, end: 20161220

REACTIONS (4)
  - Dizziness [Recovered/Resolved]
  - Abdominal pain [Recovered/Resolved]
  - Rash [Recovered/Resolved]
  - Insomnia [Recovered/Resolved]

NARRATIVE: CASE EVENT DATE: 20161219
